FAERS Safety Report 7237764 (Version 2)
Quarter: 2013Q1

REPORT INFORMATION
  Report Type: Spontaneous
  Country: CA (occurrence: None)
  Receive Date: 20091217
  Receipt Date: 20121204
  Transmission Date: 20140127
  Serious: Yes (Hospitalization)
  Sender: FDA-Public Use
  Company Number: CAP09000328

PATIENT
  Age: 73 Year
  Sex: Female

DRUGS (3)
  1. ACTONEL [Suspect]
     Indication: OSTEOPOROSIS POSTMENOPAUSAL
     Dosage: 150 MG ONE DOSE ONLY, ORAL
     Route: 048
     Dates: start: 200911, end: 200911
  2. ACTONEL (RISEDRONATE SODIUM) TABLET, 35 MG [Concomitant]
     Route: 048
  3. CELESTODERM V (BETAMETHASONE VALERATE OINTMENT [Concomitant]

REACTIONS (9)
  - Scleritis [None]
  - Uveitis [None]
  - Visual impairment [None]
  - Periorbital oedema [None]
  - Eye movement disorder [None]
  - Eyelid oedema [None]
  - Myalgia [None]
  - Arthralgia [None]
  - Gastrointestinal pain [None]
